FAERS Safety Report 9063608 (Version 1)
Quarter: 2013Q1

REPORT INFORMATION
  Report Type: Report from Study
  Country: US (occurrence: US)
  Receive Date: 20130131
  Receipt Date: 20130131
  Transmission Date: 20140127
  Serious: No
  Sender: FDA-Public Use
  Company Number: US-ABBOTT-12P-163-0992614-00

PATIENT
  Age: 67 Year
  Sex: Male

DRUGS (8)
  1. HUMIRA [Suspect]
     Indication: RHEUMATOID ARTHRITIS
     Dates: start: 201206
  2. HCTZ [Concomitant]
     Indication: HYPERTENSION
  3. ARAVA [Concomitant]
     Indication: PRODUCT USED FOR UNKNOWN INDICATION
     Dosage: 20 MG DAILY
  4. LEFLUNOMIDE [Concomitant]
     Indication: RHEUMATOID ARTHRITIS
  5. METHOTREXATE [Concomitant]
     Indication: PRODUCT USED FOR UNKNOWN INDICATION
  6. LISINOPRIL [Concomitant]
     Indication: HYPERTENSION
     Dosage: 20 MG DAILY (UNSURE)
  7. METOPROLOL [Concomitant]
     Indication: HYPERTENSION
     Dosage: 50 MG DAILY (UNSURE)
  8. METOPROLOL [Concomitant]

REACTIONS (6)
  - Rheumatoid arthritis [Not Recovered/Not Resolved]
  - Injection site bruising [Unknown]
  - Injection site pain [Unknown]
  - Injection site pain [Unknown]
  - Fibromyalgia [Unknown]
  - Injection site pruritus [Unknown]
